FAERS Safety Report 9402379 (Version 2)
Quarter: 2013Q3

REPORT INFORMATION
  Report Type: Spontaneous
  Country: JP (occurrence: JP)
  Receive Date: 20130716
  Receipt Date: 20130725
  Transmission Date: 20140515
  Serious: Yes (Other)
  Sender: FDA-Public Use
  Company Number: JP-PFIZER INC-2013204021

PATIENT
  Age: 10 Year
  Sex: Female

DRUGS (1)
  1. GENOTROPIN TC [Suspect]
     Dosage: 1.0MG OR 0.8MG, 1X/DAY
     Route: 058

REACTIONS (2)
  - Fracture [Unknown]
  - Abnormal behaviour [Unknown]
